FAERS Safety Report 23159688 (Version 1)
Quarter: 2023Q4

REPORT INFORMATION
  Report Type: Spontaneous
  Country: US (occurrence: US)
  Receive Date: 20231108
  Receipt Date: 20231108
  Transmission Date: 20240109
  Serious: No
  Sender: FDA-Public Use
  Company Number: US-BRISTOL-MYERS SQUIBB COMPANY-2023-159296

PATIENT
  Age: 75 Year
  Sex: Female

DRUGS (1)
  1. SPRYCEL [Suspect]
     Active Substance: DASATINIB
     Indication: Product used for unknown indication
     Route: 048

REACTIONS (7)
  - Abdominal pain [Recovered/Resolved]
  - Abdominal discomfort [Recovering/Resolving]
  - Herpes zoster [Unknown]
  - Bursitis [Unknown]
  - Pain [Unknown]
  - Diarrhoea [Unknown]
  - Constipation [Recovered/Resolved]
